FAERS Safety Report 5737327-7 (Version None)
Quarter: 2008Q2

REPORT INFORMATION
  Report Type: 
  Country: None (occurrence: None)
  Receive Date: 20080513
  Receipt Date: 20080513
  Transmission Date: 20081010
  Serious: Yes (Death, Other)
  Sender: FDA-Public Use
  Company Number: None

PATIENT
  Age: 84 Year
  Weight: 68.0396 kg

DRUGS (2)
  1. DIGITEK [Suspect]
     Indication: ATRIAL FIBRILLATION
     Dates: start: 20070101, end: 20080512
  2. DIGOXIN [Concomitant]

REACTIONS (3)
  - ASTHENIA [None]
  - CARDIAC MURMUR [None]
  - PHARMACEUTICAL PRODUCT COMPLAINT [None]
